FAERS Safety Report 11346596 (Version 1)
Quarter: 2015Q3

REPORT INFORMATION
  Report Type: Spontaneous
  Country: US (occurrence: US)
  Receive Date: 20150803
  Receipt Date: 20150803
  Transmission Date: 20151125
  Serious: No
  Sender: FDA-Public Use
  Company Number: US-ELI_LILLY_AND_COMPANY-US201009000205

PATIENT
  Age: 4 Year
  Sex: Male

DRUGS (3)
  1. STRATTERA [Suspect]
     Active Substance: ATOMOXETINE HYDROCHLORIDE
     Indication: ATTENTION DEFICIT/HYPERACTIVITY DISORDER
     Dosage: 10 MG, DAILY (1/D)
  2. STRATTERA [Suspect]
     Active Substance: ATOMOXETINE HYDROCHLORIDE
     Dosage: 5 MG, DAILY (1/D)
  3. MULTIVITAMINS PLUS IRON [Concomitant]
     Dosage: UNK, DAILY (1/D)

REACTIONS (9)
  - Somnolence [Unknown]
  - Intentional product misuse [Not Recovered/Not Resolved]
  - Decreased appetite [Recovered/Resolved]
  - Feeding disorder [Unknown]
  - Croup infectious [Unknown]
  - Abdominal pain upper [Unknown]
  - Off label use [Not Recovered/Not Resolved]
  - Asthenia [Unknown]
  - Nausea [Unknown]
